FAERS Safety Report 19720645 (Version 2)
Quarter: 2021Q4

REPORT INFORMATION
  Report Type: Spontaneous
  Country: US (occurrence: US)
  Receive Date: 20210819
  Receipt Date: 20211004
  Transmission Date: 20220303
  Serious: No
  Sender: FDA-Public Use
  Company Number: US-GE HEALTHCARE LIFE SCIENCES-2021CSU003041

PATIENT

DRUGS (2)
  1. ADREVIEW [Suspect]
     Active Substance: IOBENGUANE I-123
     Indication: Diagnostic procedure
     Dosage: 259MBQ (7 MCI), ONCE
     Route: 065
     Dates: start: 20210608, end: 20210608
  2. ADREVIEW [Suspect]
     Active Substance: IOBENGUANE I-123
     Indication: Product used for unknown indication

REACTIONS (2)
  - Product quality issue [Recovered/Resolved]
  - No adverse event [Recovered/Resolved]

NARRATIVE: CASE EVENT DATE: 20210608
